FAERS Safety Report 26044743 (Version 2)
Quarter: 2025Q4

REPORT INFORMATION
  Report Type: Report from Study
  Country: DO (occurrence: DO)
  Receive Date: 20251114
  Receipt Date: 20251119
  Transmission Date: 20260117
  Serious: Yes (Hospitalization)
  Sender: ABBVIE
  Company Number: DO-JNJFOC-20251151812

PATIENT
  Age: 67 Year
  Sex: Male
  Weight: 86 kg

DRUGS (1)
  1. IMBRUVICA [Suspect]
     Active Substance: IBRUTINIB
     Indication: Chronic lymphocytic leukaemia
     Route: 048
     Dates: start: 20220301

REACTIONS (6)
  - Back pain [Unknown]
  - Headache [Unknown]
  - Heart rate abnormal [Unknown]
  - Tachycardia [Recovering/Resolving]
  - Loss of consciousness [Unknown]
  - Neck pain [Unknown]

NARRATIVE: CASE EVENT DATE: 20251001
